FAERS Safety Report 20940092 (Version 1)
Quarter: 2022Q2

REPORT INFORMATION
  Report Type: Spontaneous
  Country: US (occurrence: US)
  Receive Date: 20220609
  Receipt Date: 20220609
  Transmission Date: 20220721
  Serious: Yes (Other)
  Sender: FDA-Public Use
  Company Number: US-PFIZER INC-202200809596

PATIENT
  Age: 75 Year
  Sex: Female

DRUGS (1)
  1. EUCRISA [Suspect]
     Active Substance: CRISABOROLE
     Dosage: 2 G ON BOTTOMS OF BOTH FEET
     Route: 061

REACTIONS (6)
  - Blindness [Unknown]
  - Macular degeneration [Unknown]
  - Product prescribing error [Unknown]
  - Feeling abnormal [Not Recovered/Not Resolved]
  - Visual impairment [Unknown]
  - Confusional state [Unknown]
